FAERS Safety Report 7294977-7 (Version None)
Quarter: 2011Q1

REPORT INFORMATION
  Report Type: 
  Country: None (occurrence: None)
  Receive Date: 20110216
  Receipt Date: 20110208
  Transmission Date: 20110831
  Serious: Yes (Other)
  Sender: FDA-Public Use
  Company Number: US-ELI_LILLY_AND_COMPANY-US201002007047

PATIENT
  Sex: Female

DRUGS (5)
  1. FORTEO [Suspect]
     Dosage: 20 UG, DAILY (1/D)
  2. FORTEO [Suspect]
     Indication: OSTEOPOROSIS
     Dosage: 20 UG, UNKNOWN
     Route: 065
     Dates: start: 20090601
  3. ATENOLOL [Concomitant]
  4. LOVASTATIN [Concomitant]
  5. PREVACID [Concomitant]
     Dosage: UNK, AS NEEDED

REACTIONS (2)
  - BREAST CANCER [None]
  - INJECTION SITE PAIN [None]
